FAERS Safety Report 8653250 (Version 2)
Quarter: 2012Q4

REPORT INFORMATION
  Report Type: Spontaneous
  Country: US (occurrence: None)
  Receive Date: 20120622
  Receipt Date: 20120917
  Transmission Date: 20130627
  Serious: Yes (Other)
  Sender: FDA-Public Use
  Company Number: ACO_30687_2012

PATIENT
  Age: 57 Year
  Sex: Female

DRUGS (4)
  1. AMPYRA [Suspect]
     Indication: PRODUCT USED FOR UNKNOWN INDICATION
     Route: 048
     Dates: start: 201110, end: 20120522
  2. REBIF [Suspect]
     Indication: PRODUCT USED FOR UNKNOWN INDICATION
     Route: 058
     Dates: start: 20020711
  3. DITROPAN (OXYBUTYNIN HYDROCHLORIDE) [Concomitant]
  4. PRISTIQ (DESVENLAFAXINE SUCCINATE) [Concomitant]

REACTIONS (7)
  - Contusion [None]
  - Decreased appetite [None]
  - Weight decreased [None]
  - Inappropriate schedule of drug administration [None]
  - Syncope [None]
  - Electrocardiogram QT prolonged [None]
  - Hypotension [None]
